FAERS Safety Report 7009389-0 (Version None)
Quarter: 2010Q3

REPORT INFORMATION
  Report Type: 
  Country: None (occurrence: None)
  Receive Date: 20100921
  Receipt Date: 20100908
  Transmission Date: 20110219
  Serious: Yes (Hospitalization)
  Sender: FDA-Public Use
  Company Number: 1000016239

PATIENT
  Age: 83 Year
  Sex: Male

DRUGS (6)
  1. ESCITALOPRAM [Suspect]
     Indication: DEPRESSION
     Dosage: 20 MG (10 MG, 2 IN 1 D), ORAL
     Route: 048
     Dates: end: 20100111
  2. PREVISCAN (FLUINDIONE) (TABLETS) [Suspect]
     Indication: CARDIOVASCULAR EVENT PROPHYLAXIS
     Dosage: 5 MG (5 MG, 1 IN 1 D), ORAL
     Route: 048
     Dates: start: 20100106, end: 20100107
  3. ISRADIPINE [Suspect]
     Indication: HYPERTENSION
     Dosage: 5 MG (5 MG, 1 IN 1 D), ORAL
     Route: 048
  4. URBANYL (CLOBAZAM) (CAPSULES) [Suspect]
     Indication: ANXIETY
     Dosage: 5 MG (5 MG, 1 IN 1 D), ORAL
     Route: 048
     Dates: end: 20100111
  5. TADENAN (PRUNUS AFRICANA EXTRACT) (CAPSULES) [Suspect]
     Indication: ANXIETY
     Dosage: 100 MG (50 MG, 2 IN 1 D), ORAL
     Route: 048
     Dates: end: 20100111
  6. POTASSIUM CHLORIDE [Suspect]
     Dates: end: 20100111

REACTIONS (2)
  - TOXIC SKIN ERUPTION [None]
  - URTICARIA [None]
